FAERS Safety Report 9490915 (Version 1)
Quarter: 2013Q3

REPORT INFORMATION
  Report Type: Spontaneous
  Country: US (occurrence: US)
  Receive Date: 20130830
  Receipt Date: 20130830
  Transmission Date: 20140515
  Serious: No
  Sender: FDA-Public Use
  Company Number: US-PFIZER INC-2013246098

PATIENT
  Age: 39 Year
  Sex: Female
  Weight: 76.4 kg

DRUGS (3)
  1. PANTOPRAZOLE [Suspect]
     Indication: GASTROOESOPHAGEAL REFLUX DISEASE
     Dosage: 40 MG, DAILY
     Route: 048
     Dates: start: 20130701, end: 20130703
  2. LORCASERIN HYDROCHLORIDE [Suspect]
     Indication: WEIGHT DECREASED
     Dosage: 10 MG, TWICE DAILY
     Dates: start: 20130702, end: 20130702
  3. PRO AIR HFA [Concomitant]
     Dosage: UNK, AS NEEDED

REACTIONS (10)
  - Chest discomfort [Recovered/Resolved]
  - Dyspnoea [Recovered/Resolved]
  - Feeling abnormal [Recovered/Resolved]
  - Pruritus [Unknown]
  - Nausea [Recovered/Resolved]
  - Dizziness [Recovered/Resolved]
  - Fatigue [Recovered/Resolved]
  - Insomnia [Recovered/Resolved]
  - Headache [Unknown]
  - Abdominal discomfort [Unknown]
